FAERS Safety Report 24013167 (Version 2)
Quarter: 2024Q3

REPORT INFORMATION
  Report Type: Report from Study
  Country: GB (occurrence: GB)
  Receive Date: 20240626
  Receipt Date: 20240910
  Transmission Date: 20241016
  Serious: Yes (Hospitalization, Other)
  Sender: JOHNSON AND JOHNSON
  Company Number: GB-JNJFOC-20240563221

PATIENT
  Age: 8 Decade
  Sex: Female

DRUGS (22)
  1. STELARA [Suspect]
     Active Substance: USTEKINUMAB
     Indication: Crohn^s disease
     Route: 058
     Dates: start: 20190902
  2. STELARA [Suspect]
     Active Substance: USTEKINUMAB
     Route: 058
     Dates: start: 2021
  3. CALCIUM CARBONATE [Concomitant]
     Active Substance: CALCIUM CARBONATE
  4. BUTYLSCOPOLAMINE BROMIDE [Concomitant]
     Active Substance: BUTYLSCOPOLAMINE BROMIDE
  5. COLISTIN [Concomitant]
     Active Substance: COLISTIN
  6. LOPERAMIDE [Concomitant]
     Active Substance: LOPERAMIDE
  7. MORPHINE [Concomitant]
     Active Substance: MORPHINE
  8. CODEINE [Concomitant]
     Active Substance: CODEINE
  9. COCODAMOL [Concomitant]
     Active Substance: ACETAMINOPHEN\CODEINE PHOSPHATE
  10. ALLOPURINOL [Concomitant]
     Active Substance: ALLOPURINOL
  11. APIXABAN [Concomitant]
     Active Substance: APIXABAN
  12. ATORVASTATIN [Concomitant]
     Active Substance: ATORVASTATIN
  13. BISOPROLOL [Concomitant]
     Active Substance: BISOPROLOL\BISOPROLOL FUMARATE
  14. GABAPENTIN [Concomitant]
     Active Substance: GABAPENTIN
  15. LEVOTHYROXINE [Concomitant]
     Active Substance: LEVOTHYROXINE\LEVOTHYROXINE SODIUM
  16. SERTRALINE [Concomitant]
     Active Substance: SERTRALINE HYDROCHLORIDE
  17. PROMETHAZINE [Concomitant]
     Active Substance: PROMETHAZINE HYDROCHLORIDE
  18. STELAZINE [Concomitant]
     Active Substance: TRIFLUOPERAZINE HYDROCHLORIDE
  19. FAMOTIDINE [Concomitant]
     Active Substance: FAMOTIDINE
  20. IMODIUM [Concomitant]
     Active Substance: LOPERAMIDE HYDROCHLORIDE
  21. DOXEPIN [Concomitant]
     Active Substance: DOXEPIN
  22. DIORALYTE [GLUCOSE;POTASSIUM CHLORIDE;SODIUM CHLORIDE;SODIUM CITRATE A [Concomitant]

REACTIONS (6)
  - Crohn^s disease [Unknown]
  - Hospitalisation [Unknown]
  - COVID-19 [Unknown]
  - Device issue [Unknown]
  - Product dose omission issue [Unknown]
  - Device breakage [Unknown]
